FAERS Safety Report 20426460 (Version 1)
Quarter: 2022Q1

REPORT INFORMATION
  Report Type: Report from Study
  Country: US (occurrence: US)
  Receive Date: 20220204
  Receipt Date: 20220204
  Transmission Date: 20220423
  Serious: No
  Sender: FDA-Public Use
  Company Number: US-EXELIXIS-CABO-21042958

PATIENT
  Age: 56 Year
  Sex: Male

DRUGS (1)
  1. CABOMETYX [Suspect]
     Active Substance: CABOZANTINIB S-MALATE
     Indication: Renal cancer
     Dosage: 40 MG, QD
     Route: 048
     Dates: start: 20210622

REACTIONS (10)
  - Hypersomnia [Unknown]
  - Tooth infection [Recovered/Resolved]
  - Blood pressure increased [Unknown]
  - Dry skin [Unknown]
  - Taste disorder [Unknown]
  - Dizziness [Recovered/Resolved]
  - Headache [Unknown]
  - Diarrhoea [Recovering/Resolving]
  - Nausea [Unknown]
  - Fatigue [Unknown]

NARRATIVE: CASE EVENT DATE: 20210802
